FAERS Safety Report 25085733 (Version 1)
Quarter: 2025Q1

REPORT INFORMATION
  Report Type: Spontaneous
  Country: DE (occurrence: DE)
  Receive Date: 20250317
  Receipt Date: 20250317
  Transmission Date: 20250408
  Serious: Yes (Other)
  Sender: TEVA
  Company Number: None

PATIENT
  Age: 69 Year
  Sex: Female
  Weight: 73 kg

DRUGS (1)
  1. ALENDRONIC ACID [Suspect]
     Active Substance: ALENDRONIC ACID
     Indication: Osteoporosis
     Dosage: 1 TIME WEEKLY (FASTING AND UPRIGHT), PLANNED INTAKE UNTIL 2025/12
     Route: 048
     Dates: start: 202307, end: 2025

REACTIONS (3)
  - Oesophageal carcinoma [Recovering/Resolving]
  - Barrett^s oesophagus [Recovering/Resolving]
  - Abdominal discomfort [Unknown]

NARRATIVE: CASE EVENT DATE: 20240101
